FAERS Safety Report 23680177 (Version 4)
Quarter: 2024Q3

REPORT INFORMATION
  Report Type: Spontaneous
  Country: DE (occurrence: DE)
  Receive Date: 20240327
  Receipt Date: 20240903
  Transmission Date: 20241017
  Serious: Yes (Other)
  Sender: JOHNSON AND JOHNSON
  Company Number: DE-JNJFOC-20240356025

PATIENT
  Age: 33 Year
  Sex: Male

DRUGS (4)
  1. SPRAVATO [Suspect]
     Active Substance: ESKETAMINE
     Indication: Major depression
     Dates: start: 20240305, end: 20240313
  2. ESCITALOPRAM [Concomitant]
     Active Substance: ESCITALOPRAM OXALATE
     Dosage: STARTING DOSE 5 MG, MAXIMUM DOSE 15 MG
  3. MIRTAZAPINE [Concomitant]
     Active Substance: MIRTAZAPINE
     Dosage: STARTING DOSE 15 MG, MAXIMUM DOSE 15 MG
  4. LORAZEPAM [Concomitant]
     Active Substance: LORAZEPAM
     Dosage: MAXIMUM DAILY DOSE OF 2 MG

REACTIONS (2)
  - Rhabdomyolysis [Recovered/Resolved]
  - Oropharyngeal pain [Unknown]

NARRATIVE: CASE EVENT DATE: 20240301
